FAERS Safety Report 24070610 (Version 1)
Quarter: 2024Q3

REPORT INFORMATION
  Report Type: Spontaneous
  Country: US (occurrence: None)
  Receive Date: 20240709
  Receipt Date: 20240709
  Transmission Date: 20241017
  Serious: Yes (Hospitalization)
  Sender: Public
  Company Number: None

PATIENT
  Age: 67 Year
  Sex: Female
  Weight: 51.3 kg

DRUGS (10)
  1. AMOXICILLIN AND CLAVULANATE POTASSIUM [Suspect]
     Active Substance: AMOXICILLIN\CLAVULANATE POTASSIUM
     Indication: Upper respiratory tract infection
     Dosage: OTHER QUANTITY : 1 CAPSULE(S);?FREQUENCY : TWICE A DAY;?
     Route: 048
     Dates: start: 20240618, end: 20240626
  2. LEVOTHYROXINE [Concomitant]
  3. CELEBREX [Concomitant]
     Active Substance: CELECOXIB
  4. WELLBUTRIN [Concomitant]
  5. DOCUSATE [Concomitant]
  6. CALCIUM [Concomitant]
     Active Substance: CALCIUM
  7. citrucel fiber pills [Concomitant]
  8. VITAMIN D [Concomitant]
     Active Substance: VITAMIN D NOS
  9. multivitamin [Concomitant]
  10. IBUPROFEN [Concomitant]

REACTIONS (3)
  - Rash [None]
  - Pyrexia [None]
  - Stomatitis [None]

NARRATIVE: CASE EVENT DATE: 20240630
